FAERS Safety Report 10717937 (Version 1)
Quarter: 2015Q1

REPORT INFORMATION
  Report Type: Spontaneous
  Country: US (occurrence: US)
  Receive Date: 20150116
  Receipt Date: 20150116
  Transmission Date: 20150721
  Serious: Yes (Death, Hospitalization)
  Sender: FDA-Public Use
  Company Number: US-IMPAX LABORATORIES, INC-2015-IPXL-00001

PATIENT
  Age: 25 Year
  Sex: Female

DRUGS (1)
  1. MINOCYCLINE HYDROCHLORIDE. [Suspect]
     Active Substance: MINOCYCLINE HYDROCHLORIDE
     Indication: ACNE CYSTIC
     Dosage: UNK
     Route: 065

REACTIONS (7)
  - Hypotension [None]
  - Seizure [None]
  - Hepatitis [None]
  - Drug hypersensitivity [Fatal]
  - Pyelonephritis [None]
  - Myocarditis [Fatal]
  - Pulmonary congestion [None]
